FAERS Safety Report 20118536 (Version 1)
Quarter: 2021Q4

REPORT INFORMATION
  Report Type: Spontaneous
  Country: DK (occurrence: DK)
  Receive Date: 20211126
  Receipt Date: 20211126
  Transmission Date: 20220303
  Serious: Yes (Other)
  Sender: FDA-Public Use
  Company Number: DK-ABBVIE-21K-044-4174195-00

PATIENT
  Age: 36 Year
  Sex: Male
  Weight: 95 kg

DRUGS (11)
  1. VALPROATE SODIUM [Suspect]
     Active Substance: VALPROATE SODIUM
     Indication: Mood swings
     Dosage: BID, 2.5 ML MORNING AND 4 ML EVENING
     Route: 048
     Dates: start: 20150717
  2. VALPROATE SODIUM [Suspect]
     Active Substance: VALPROATE SODIUM
     Indication: Mania
     Route: 065
     Dates: start: 20150202, end: 20170614
  3. QUETIAPINE FUMARATE [Suspect]
     Active Substance: QUETIAPINE FUMARATE
     Indication: Mental disorder
     Route: 048
     Dates: start: 20050310
  4. ZIPRASIDONE HYDROCHLORIDE [Suspect]
     Active Substance: ZIPRASIDONE HYDROCHLORIDE
     Indication: Mental disorder
     Route: 048
  5. CLOZAPINE [Suspect]
     Active Substance: CLOZAPINE
     Indication: Psychotic disorder
     Dosage: PREVIOUSLY 350 MG, 15 FEB-14 SEP 2017 250 MG X 1 DGL, FROM 14 SEP 2017 200 MG X 1 DGL
     Route: 048
  6. CLOZAPINE [Suspect]
     Active Substance: CLOZAPINE
     Indication: Schizophrenia
     Dosage: 150-350 MG,
     Route: 048
  7. CLOZAPINE [Suspect]
     Active Substance: CLOZAPINE
     Route: 048
     Dates: start: 20170215, end: 20170914
  8. CLOZAPINE [Suspect]
     Active Substance: CLOZAPINE
     Route: 048
     Dates: start: 20170914
  9. CLOZAPINE [Suspect]
     Active Substance: CLOZAPINE
     Route: 048
  10. RISPERIDONE [Suspect]
     Active Substance: RISPERIDONE
     Indication: Schizophrenia
     Route: 065
     Dates: start: 2003, end: 2006
  11. RISPERIDONE [Suspect]
     Active Substance: RISPERIDONE
     Indication: Mania

REACTIONS (8)
  - Hyperprolactinaemia [Not Recovered/Not Resolved]
  - Erectile dysfunction [Not Recovered/Not Resolved]
  - Testicular atrophy [Not Recovered/Not Resolved]
  - Hypogonadism male [Not Recovered/Not Resolved]
  - Hormone level abnormal [Not Recovered/Not Resolved]
  - Feminisation acquired [Not Recovered/Not Resolved]
  - Sperm concentration decreased [Not Recovered/Not Resolved]
  - Infertility [Not Recovered/Not Resolved]

NARRATIVE: CASE EVENT DATE: 20160717
